FAERS Safety Report 7843979-8 (Version None)
Quarter: 2011Q4

REPORT INFORMATION
  Report Type: 
  Country: None (occurrence: None)
  Receive Date: 20111025
  Receipt Date: 20111021
  Transmission Date: 20120403
  Serious: Yes (Death, Other)
  Sender: FDA-Public Use
  Company Number: PHHY2011NO82094

PATIENT
  Sex: Male
  Weight: 88 kg

DRUGS (11)
  1. SIMVASTATIN [Interacting]
     Route: 065
  2. TRABECTEDIN [Suspect]
     Indication: LIPOSARCOMA
     Dosage: 3.15 MG/M2, UNK
     Route: 042
     Dates: start: 20110801, end: 20110802
  3. ASPIRIN [Concomitant]
     Indication: CARDIOVASCULAR DISORDER
     Dosage: 75 MG, UNK
     Route: 048
     Dates: start: 20090201
  4. CORTICOSTEROIDS [Concomitant]
     Indication: PREMEDICATION
     Route: 065
  5. RAMIPRIL [Concomitant]
     Dosage: DOSAGE FORM: UNSPECIFIED
     Route: 048
     Dates: start: 20090201
  6. METOPROLOL TARTRATE [Concomitant]
     Indication: CARDIOVASCULAR DISORDER
     Dosage: 100 MG, UNK
     Route: 048
     Dates: start: 20090201
  7. ANTIBIOTICS [Suspect]
  8. ZOCOR [Concomitant]
     Indication: CARDIOVASCULAR DISORDER
     Dosage: 60 MG, UNK
     Route: 048
     Dates: start: 20090201
  9. METOPROLOL TARTRATE [Concomitant]
     Dosage: DOSAGE FORM: UNSPECIFIED
     Route: 048
     Dates: start: 20090201
  10. RAMIPRIL [Concomitant]
     Indication: CARDIOVASCULAR DISORDER
     Dosage: 5 MG, UNK
     Route: 048
     Dates: start: 20090201
  11. ZOCOR [Concomitant]
     Dosage: DOSAGE FORM: UNSPECIFIED
     Route: 048
     Dates: start: 20090201

REACTIONS (12)
  - DEATH [None]
  - ANURIA [None]
  - ASCITES [None]
  - PANCYTOPENIA [None]
  - RENAL FAILURE [None]
  - BONE MARROW FAILURE [None]
  - RENAL IMPAIRMENT [None]
  - HEPATIC FUNCTION ABNORMAL [None]
  - PLEURAL EFFUSION [None]
  - RHABDOMYOLYSIS [None]
  - LUNG INFILTRATION [None]
  - DRUG INTERACTION [None]
